FAERS Safety Report 9725726 (Version 1)
Quarter: 2013Q4

REPORT INFORMATION
  Report Type: Spontaneous
  Country: US (occurrence: None)
  Receive Date: 20131202
  Receipt Date: 20131202
  Transmission Date: 20140711
  Serious: Yes (Other)
  Sender: FDA-Public Use
  Company Number: None

PATIENT
  Age: 38 Year
  Sex: Male
  Weight: 68.04 kg

DRUGS (2)
  1. DICLOFENAC [Suspect]
     Indication: ARTHRITIS
     Route: 048
     Dates: start: 20130815, end: 20131030
  2. DICLOFENAC [Suspect]
     Indication: ARTHRALGIA
     Route: 048
     Dates: start: 20130815, end: 20131030

REACTIONS (1)
  - Irritability [None]
